FAERS Safety Report 22157239 (Version 1)
Quarter: 2023Q1

REPORT INFORMATION
  Report Type: Report from Study
  Country: US (occurrence: US)
  Receive Date: 20230330
  Receipt Date: 20230330
  Transmission Date: 20230418
  Serious: No
  Sender: FDA-Public Use
  Company Number: US-002147023-NVSC2023US074099

PATIENT
  Sex: Female

DRUGS (1)
  1. COSENTYX [Suspect]
     Active Substance: SECUKINUMAB
     Indication: Psoriatic arthropathy
     Dosage: 150 MG, OTHER (STARTED COSENTYX AND DID TWO INJECTIONS SO FAR) (ONCE A WEEK FOR 5 WEEKS THEN Q 4 WEE
     Route: 058

REACTIONS (1)
  - Contusion [Unknown]
